FAERS Safety Report 22157147 (Version 2)
Quarter: 2023Q2

REPORT INFORMATION
  Report Type: Spontaneous
  Country: SG (occurrence: SG)
  Receive Date: 20230330
  Receipt Date: 20230413
  Transmission Date: 20230721
  Serious: Yes (Other)
  Sender: FDA-Public Use
  Company Number: SG-TEVA-2023-SG-2870815

PATIENT
  Age: 6 Year
  Sex: Female

DRUGS (7)
  1. PREDNISOLONE [Suspect]
     Active Substance: PREDNISOLONE
     Indication: Anaphylaxis prophylaxis
     Route: 048
  2. MYOZYME [Suspect]
     Active Substance: ALGLUCOSIDASE ALFA
     Indication: Glycogen storage disease type II
     Dosage: ROUTE: {INFUSION}
     Route: 050
  3. MYOZYME [Suspect]
     Active Substance: ALGLUCOSIDASE ALFA
     Dosage: ADMINISTERED UNDER THE DESENSITISATION PROTOCOL, ROUTE: {INFUSION}
     Route: 050
  4. MYOZYME [Suspect]
     Active Substance: ALGLUCOSIDASE ALFA
     Dosage: ADMINISTERED UNDER THE DESENSITISATION PROTOCOL, ROUTE: {INFUSION}
     Route: 050
  5. MYOZYME [Suspect]
     Active Substance: ALGLUCOSIDASE ALFA
     Dosage: ADMINISTERED UNDER THE DESENSITISATION PROTOCOL, ROUTE: {INFUSION}
     Route: 050
  6. MYOZYME [Suspect]
     Active Substance: ALGLUCOSIDASE ALFA
     Dosage: ADMINISTERED UNDER THE DESENSITISATION PROTOCOL, ROUTE: {INFUSION}
     Route: 050
  7. CETIRIZINE [Suspect]
     Active Substance: CETIRIZINE HYDROCHLORIDE
     Indication: Anaphylaxis prophylaxis
     Route: 048

REACTIONS (3)
  - Drug hypersensitivity [Unknown]
  - Urticaria [Not Recovered/Not Resolved]
  - Drug ineffective [Unknown]

NARRATIVE: CASE EVENT DATE: 20160901
